FAERS Safety Report 10006589 (Version 1)
Quarter: 2014Q1

REPORT INFORMATION
  Report Type: Spontaneous
  Country: US (occurrence: US)
  Receive Date: 20140313
  Receipt Date: 20140313
  Transmission Date: 20141002
  Serious: Yes (Other)
  Sender: FDA-Public Use
  Company Number: US-GE HEALTHCARE MEDICAL DIAGNOSTICS-OSCN-PR-0905S-0275

PATIENT
  Age: 68 Year
  Sex: Male

DRUGS (66)
  1. OMNISCAN [Suspect]
     Indication: RENAL MASS
     Route: 042
     Dates: start: 20031208, end: 20031208
  2. OMNISCAN [Suspect]
     Route: 042
     Dates: start: 20040803, end: 20040803
  3. OMNISCAN [Suspect]
     Route: 042
     Dates: start: 20050113, end: 20050113
  4. OMNISCAN [Suspect]
     Route: 042
     Dates: start: 20050319, end: 20050319
  5. OMNISCAN [Suspect]
     Route: 042
     Dates: start: 20060214, end: 20060214
  6. GADOLINIUM (UNSPECIFIED) [Suspect]
     Indication: RENAL ARTERY STENOSIS
     Route: 042
     Dates: start: 20030728, end: 20030728
  7. GADOLINIUM (UNSPECIFIED) [Suspect]
     Indication: RENAL DISORDER
  8. ALBUTEROL [Concomitant]
     Indication: PRODUCT USED FOR UNKNOWN INDICATION
     Dates: start: 2004
  9. BACTRIM [Concomitant]
     Indication: PRODUCT USED FOR UNKNOWN INDICATION
     Dates: start: 2002, end: 2007
  10. CARDIZEM [Concomitant]
     Indication: PRODUCT USED FOR UNKNOWN INDICATION
     Dates: start: 2004
  11. CEFTAZIDIME [Concomitant]
     Indication: PRODUCT USED FOR UNKNOWN INDICATION
     Dates: start: 2004
  12. CELLCEPT [Concomitant]
     Indication: TRANSPLANT REJECTION
     Dates: start: 2004, end: 2007
  13. CIPRO [Concomitant]
     Indication: PRODUCT USED FOR UNKNOWN INDICATION
     Dates: start: 2005, end: 2007
  14. CLINDAMYCIN [Concomitant]
     Indication: PRODUCT USED FOR UNKNOWN INDICATION
     Dates: start: 2004
  15. CLONIDINE [Concomitant]
     Indication: HYPERTENSION
     Dates: start: 2004
  16. COUMADIN [Concomitant]
     Indication: ANTICOAGULANT THERAPY
     Dates: start: 2004, end: 2007
  17. DARVOCET-N [Concomitant]
     Indication: PRODUCT USED FOR UNKNOWN INDICATION
     Dates: start: 2003
  18. EPOGEN [Concomitant]
     Indication: ANAEMIA OF CHRONIC DISEASE
     Dates: start: 2004, end: 2007
  19. FAMVIR [Concomitant]
     Indication: PRODUCT USED FOR UNKNOWN INDICATION
     Dates: start: 2004
  20. FORTAZ [Concomitant]
     Indication: PRODUCT USED FOR UNKNOWN INDICATION
     Dates: start: 2004
  21. FOSAMAX [Concomitant]
     Indication: PRODUCT USED FOR UNKNOWN INDICATION
     Dates: start: 2003, end: 2003
  22. HEPARIN [Concomitant]
     Indication: PRODUCT USED FOR UNKNOWN INDICATION
     Dates: start: 2004, end: 2007
  23. HYDROCORTISONE [Concomitant]
     Indication: PRODUCT USED FOR UNKNOWN INDICATION
     Dates: start: 2004
  24. IMURAN [Concomitant]
     Indication: TRANSPLANT REJECTION
     Dates: start: 2002, end: 2007
  25. IRON [Concomitant]
     Indication: PRODUCT USED FOR UNKNOWN INDICATION
     Dates: start: 2004, end: 2007
  26. ISOSORBIDE MONONITRATE [Concomitant]
     Indication: PRODUCT USED FOR UNKNOWN INDICATION
     Dates: start: 2007
  27. KEFLEX [Concomitant]
     Indication: PRODUCT USED FOR UNKNOWN INDICATION
     Dates: start: 2006
  28. LASIX [Concomitant]
     Indication: PRODUCT USED FOR UNKNOWN INDICATION
     Route: 048
     Dates: start: 2003, end: 2004
  29. LIPITOR [Concomitant]
     Indication: PRODUCT USED FOR UNKNOWN INDICATION
     Dates: start: 2002, end: 2003
  30. LOVENOX [Concomitant]
     Indication: PRODUCT USED FOR UNKNOWN INDICATION
     Dates: start: 2005
  31. LOVENOX [Concomitant]
     Dates: start: 2007
  32. MIDODRINE [Concomitant]
     Indication: PRODUCT USED FOR UNKNOWN INDICATION
     Dates: start: 2005, end: 2007
  33. MORPHINE [Concomitant]
     Indication: PRODUCT USED FOR UNKNOWN INDICATION
     Dates: start: 2004
  34. NEORAL [Concomitant]
     Indication: TRANSPLANT REJECTION
     Dates: start: 200206, end: 200401
  35. NORVASC [Concomitant]
     Indication: HYPERTENSION
     Route: 048
  36. NEURONTIN [Concomitant]
     Indication: POST HERPETIC NEURALGIA
     Dates: start: 2004, end: 2007
  37. OXYCODONE [Concomitant]
     Indication: PRODUCT USED FOR UNKNOWN INDICATION
     Dates: start: 2004
  38. PERCOCET [Concomitant]
     Indication: PRODUCT USED FOR UNKNOWN INDICATION
     Dates: start: 2004
  39. PHENERGAN [Concomitant]
     Indication: PRODUCT USED FOR UNKNOWN INDICATION
  40. PHOSLO [Concomitant]
     Indication: RENAL FAILURE CHRONIC
     Route: 048
     Dates: start: 2004, end: 2007
  41. PREDNISONE [Concomitant]
     Indication: TRANSPLANT REJECTION
     Dates: start: 2002, end: 2007
  42. PROGRAF [Concomitant]
     Indication: TRANSPLANT REJECTION
     Dates: start: 2003, end: 2007
  43. PROTONIX [Concomitant]
     Indication: PRODUCT USED FOR UNKNOWN INDICATION
     Dates: start: 2004, end: 2007
  44. PYRIDIUM [Concomitant]
     Indication: PRODUCT USED FOR UNKNOWN INDICATION
     Dates: start: 2004
  45. RAPAMUNE [Concomitant]
     Indication: LUNG TRANSPLANT
     Dates: start: 2003, end: 2007
  46. REGLAN [Concomitant]
     Indication: PRODUCT USED FOR UNKNOWN INDICATION
     Dates: start: 2004
  47. RESTORIL [Concomitant]
     Indication: PRODUCT USED FOR UNKNOWN INDICATION
     Dates: start: 2004
  48. ROCEPHIN [Concomitant]
     Indication: PRODUCT USED FOR UNKNOWN INDICATION
  49. SOLU-MEDROL [Concomitant]
     Indication: PRODUCT USED FOR UNKNOWN INDICATION
     Dates: start: 2004
  50. TOBRAMYCIN [Concomitant]
     Indication: PRODUCT USED FOR UNKNOWN INDICATION
     Dates: start: 2004, end: 2005
  51. TOPROL XL [Concomitant]
     Indication: HYPERTENSION
     Dates: start: 2004, end: 2005
  52. VANCOMYCIN [Concomitant]
     Indication: PRODUCT USED FOR UNKNOWN INDICATION
     Dates: start: 2004, end: 2005
  53. VANCOMYCIN [Concomitant]
     Dates: start: 2007
  54. VENOFER [Concomitant]
     Indication: PRODUCT USED FOR UNKNOWN INDICATION
     Dates: start: 2004
  55. VENOFER [Concomitant]
     Dates: start: 2007
  56. ZANTAC [Concomitant]
     Indication: PRODUCT USED FOR UNKNOWN INDICATION
     Route: 048
     Dates: start: 2002, end: 2004
  57. ZEMPLAR [Concomitant]
     Indication: HYPERPARATHYROIDISM SECONDARY
     Dates: start: 2004, end: 2005
  58. ZINC SULFATE [Concomitant]
     Indication: MINERAL SUPPLEMENTATION
     Dates: start: 2007, end: 2007
  59. ZITHROMAX [Concomitant]
     Indication: PRODUCT USED FOR UNKNOWN INDICATION
     Dates: start: 2006, end: 2007
  60. MULTIVITAMIN [Concomitant]
     Indication: PRODUCT USED FOR UNKNOWN INDICATION
  61. MAGNESIUM [Concomitant]
     Indication: PRODUCT USED FOR UNKNOWN INDICATION
  62. CALCIUM CARBONATE [Concomitant]
     Indication: ANTACID THERAPY
  63. SIROLIMUS [Concomitant]
     Indication: PRODUCT USED FOR UNKNOWN INDICATION
  64. NEPHROVITE [Concomitant]
     Indication: PRODUCT USED FOR UNKNOWN INDICATION
     Route: 048
  65. VITAMIN C [Concomitant]
     Indication: PRODUCT USED FOR UNKNOWN INDICATION
     Route: 048
  66. ZINCATE [Concomitant]
     Indication: PRODUCT USED FOR UNKNOWN INDICATION
     Route: 048

REACTIONS (1)
  - Nephrogenic systemic fibrosis [Not Recovered/Not Resolved]
